FAERS Safety Report 6621918-5 (Version None)
Quarter: 2010Q1

REPORT INFORMATION
  Report Type: 
  Country: None (occurrence: None)
  Receive Date: 20100223
  Receipt Date: 20100105
  Transmission Date: 20100710
  Serious: No
  Sender: FDA-Public Use
  Company Number: 003787

PATIENT
  Sex: Female

DRUGS (1)
  1. CIMZIA [Suspect]
     Indication: CROHN'S DISEASE
     Dosage: 400 MG EVERY 28 DAYS SUBCUTANEOUS
     Route: 058
     Dates: start: 20091230

REACTIONS (1)
  - INJECTION SITE PAIN [None]
